FAERS Safety Report 25592082 (Version 1)
Quarter: 2025Q3

REPORT INFORMATION
  Report Type: Spontaneous
  Country: CA (occurrence: CA)
  Receive Date: 20250722
  Receipt Date: 20250722
  Transmission Date: 20251021
  Serious: Yes (Other)
  Sender: NOVARTIS
  Company Number: CA-002147023-NVSC2025CA115614

PATIENT
  Sex: Female

DRUGS (2)
  1. LETROZOLE [Suspect]
     Active Substance: LETROZOLE
     Indication: Ovarian cancer metastatic
     Dosage: 2.5 MG, QD
     Route: 065
     Dates: start: 20210701, end: 20220608
  2. FULVESTRANT [Suspect]
     Active Substance: FULVESTRANT
     Indication: Ovarian cancer metastatic
     Dosage: 500 MG, Q4W
     Route: 065
     Dates: start: 20220808, end: 20230913

REACTIONS (3)
  - Malignant neoplasm progression [Unknown]
  - Ovarian cancer metastatic [Unknown]
  - Off label use [Unknown]
